FAERS Safety Report 4719529-1 (Version None)
Quarter: 2005Q3

REPORT INFORMATION
  Report Type: 
  Country: None (occurrence: None)
  Receive Date: 20050719
  Receipt Date: 20050719
  Transmission Date: 20060218
  Serious: Yes (Hospitalization)
  Sender: FDA-Public Use
  Company Number: None

PATIENT
  Sex: Male

DRUGS (8)
  1. ALENDRONATE SODIUM [Suspect]
     Indication: OSTEOPOROSIS
     Dosage: 80 MG WEEKLY ORAL
     Route: 048
  2. CLOPIDOGREL 75 MG [Suspect]
     Indication: VASCULAR DEMENTIA
     Dosage: 75 MG DAILY ORAL
     Route: 048
  3. CALCIUM/VIT D [Concomitant]
  4. LEVOTHYROXINE SODIUM [Concomitant]
  5. DONEPEZIL HCL [Concomitant]
  6. OXYBUTYNIN [Concomitant]
  7. PRAZOSIN HCL [Concomitant]
  8. VIT E [Concomitant]

REACTIONS (2)
  - HAEMATEMESIS [None]
  - HAEMOGLOBIN DECREASED [None]
